FAERS Safety Report 5834853-7 (Version None)
Quarter: 2008Q3

REPORT INFORMATION
  Report Type: 
  Country: None (occurrence: None)
  Receive Date: 20080724
  Receipt Date: 20080405
  Transmission Date: 20090109
  Serious: Yes (Other)
  Sender: FDA-Public Use
  Company Number: US021903

PATIENT
  Age: 58 Year
  Sex: Female
  Weight: 93.441 kg

DRUGS (6)
  1. AMRIX [Suspect]
     Indication: NERVOUS SYSTEM DISORDER
     Dosage: 30 MG QD ORAL
     Route: 048
     Dates: start: 20071205, end: 20071206
  2. LOPRESSOR [Concomitant]
  3. VERAPAMIL [Concomitant]
  4. LYRICA [Concomitant]
  5. PEXEVA [Concomitant]
  6. REQUIP [Concomitant]

REACTIONS (6)
  - BURNING SENSATION [None]
  - CONVULSION [None]
  - DIZZINESS [None]
  - DRY MOUTH [None]
  - DYSPHONIA [None]
  - PAIN IN EXTREMITY [None]
